FAERS Safety Report 6172358-7 (Version None)
Quarter: 2009Q2

REPORT INFORMATION
  Report Type: 
  Country: None (occurrence: None)
  Receive Date: 20090429
  Receipt Date: 20090304
  Transmission Date: 20091009
  Serious: No
  Sender: FDA-Public Use
  Company Number: US-BAYER-200910755BCC

PATIENT
  Sex: Male
  Weight: 86 kg

DRUGS (5)
  1. ALEVE [Suspect]
     Indication: INFLUENZA
     Dosage: TOTAL DAILY DOSE: 1760 MG  UNIT DOSE: 220 MG
     Route: 048
     Dates: start: 20090304
  2. ALEVE [Suspect]
     Dosage: TOOK A LONG TIME AGO
     Route: 065
  3. TAMIFLU [Concomitant]
     Indication: DRUG USE FOR UNKNOWN INDICATION
     Route: 065
  4. TESSALON [Concomitant]
     Indication: DRUG USE FOR UNKNOWN INDICATION
     Route: 065
  5. COUGH MEDICINE [Concomitant]
     Indication: DRUG USE FOR UNKNOWN INDICATION
     Route: 065

REACTIONS (2)
  - DIZZINESS [None]
  - VISUAL IMPAIRMENT [None]
